FAERS Safety Report 23919397 (Version 3)
Quarter: 2024Q2

REPORT INFORMATION
  Report Type: Spontaneous
  Country: CA (occurrence: CA)
  Receive Date: 20240530
  Receipt Date: 20240628
  Transmission Date: 20240716
  Serious: Yes (Other)
  Sender: FDA-Public Use
  Company Number: CA-PFIZER INC-202400180453

PATIENT
  Age: 54 Year
  Sex: Female

DRUGS (5)
  1. RUXIENCE [Suspect]
     Active Substance: RITUXIMAB-PVVR
     Indication: Scleroderma
     Dosage: 1 G,DAY 1 AND 15, (1000 MG, DAY 1)
     Route: 042
     Dates: start: 20240527
  2. ACETAMINOPHEN [Concomitant]
     Active Substance: ACETAMINOPHEN
     Indication: Premedication
     Dosage: UNK
     Dates: start: 20240527, end: 20240527
  3. DIPHENHYDRAMINE [Concomitant]
     Active Substance: DIPHENHYDRAMINE
     Indication: Premedication
     Dosage: UNK
     Dates: start: 20240527, end: 20240527
  4. HYDROXYCHLOROQUINE [Concomitant]
     Active Substance: HYDROXYCHLOROQUINE
     Dosage: UNK
  5. HYDROXYCHLOROQUINE [Concomitant]
     Active Substance: HYDROXYCHLOROQUINE
     Dosage: 1 DF

REACTIONS (16)
  - Drug hypersensitivity [Recovering/Resolving]
  - Raynaud^s phenomenon [Recovering/Resolving]
  - Disease recurrence [Recovering/Resolving]
  - Dyspnoea [Recovering/Resolving]
  - Pain [Recovering/Resolving]
  - Dizziness [Recovering/Resolving]
  - Pallor [Recovering/Resolving]
  - Peripheral coldness [Recovering/Resolving]
  - Pulse abnormal [Recovering/Resolving]
  - Feeling cold [Recovering/Resolving]
  - Headache [Recovering/Resolving]
  - Chills [Recovering/Resolving]
  - Pyrexia [Recovering/Resolving]
  - Blood pressure fluctuation [Unknown]
  - Nasal congestion [Unknown]
  - Ear pruritus [Unknown]

NARRATIVE: CASE EVENT DATE: 20240527
